FAERS Safety Report 5874484-6 (Version None)
Quarter: 2008Q3

REPORT INFORMATION
  Report Type: 
  Country: None (occurrence: None)
  Receive Date: 20080909
  Receipt Date: 20080826
  Transmission Date: 20090109
  Serious: Yes (Other)
  Sender: FDA-Public Use
  Company Number: PHEH2008US06491

PATIENT
  Sex: Female
  Weight: 73.923 kg

DRUGS (1)
  1. RECLAST [Suspect]
     Indication: OSTEOPOROSIS
     Dosage: 5MG YEARLY
     Route: 042
     Dates: start: 20080708, end: 20080708

REACTIONS (6)
  - ASPIRATION JOINT [None]
  - BONE PAIN [None]
  - CHONDROCALCINOSIS PYROPHOSPHATE [None]
  - GAIT DISTURBANCE [None]
  - INFLUENZA LIKE ILLNESS [None]
  - JOINT SWELLING [None]
